FAERS Safety Report 12729281 (Version 1)
Quarter: 2016Q3

REPORT INFORMATION
  Report Type: Spontaneous
  Country: US (occurrence: US)
  Receive Date: 20160909
  Receipt Date: 20160909
  Transmission Date: 20161109
  Serious: Yes (Hospitalization)
  Sender: FDA-Public Use
  Company Number: US-OTSUKA-2016_017560

PATIENT
  Sex: Male

DRUGS (1)
  1. ABILIFY MAINTENA [Suspect]
     Active Substance: ARIPIPRAZOLE
     Indication: PRODUCT USED FOR UNKNOWN INDICATION
     Dosage: UNK
     Route: 030

REACTIONS (11)
  - Dependence [Unknown]
  - Alcoholism [Unknown]
  - Skin odour abnormal [Unknown]
  - Patient uncooperative [Unknown]
  - Depression [Unknown]
  - Fatigue [Unknown]
  - Homicidal ideation [Unknown]
  - Neglect of personal appearance [Unknown]
  - Delusional disorder, persecutory type [Unknown]
  - Anger [Unknown]
  - Agitation [Unknown]
